FAERS Safety Report 8906515 (Version 1)
Quarter: 2012Q4

REPORT INFORMATION
  Report Type: Spontaneous
  Country: BE (occurrence: None)
  Receive Date: 20121107
  Receipt Date: 20121107
  Transmission Date: 20130627
  Serious: Yes (Other)
  Sender: FDA-Public Use
  Company Number: B0841483A

PATIENT
  Age: 48 Year
  Sex: Male

DRUGS (5)
  1. RETROVIR [Suspect]
     Indication: HIV INFECTION
  2. EPIVIR [Suspect]
     Indication: HIV INFECTION
  3. ADVAIR [Suspect]
     Indication: BRONCHIAL HYPERREACTIVITY
     Dosage: 1 puff(s) twice per day Inhaled
  4. LOPINAVIR [Suspect]
     Indication: HIV INFECTION
  5. RITONAVIR [Suspect]
     Indication: HIV INFECTION

REACTIONS (3)
  - Bronchial hyperreactivity [None]
  - Cushing^s syndrome [None]
  - Drug interaction [None]
